FAERS Safety Report 11338771 (Version 1)
Quarter: 2015Q3

REPORT INFORMATION
  Report Type: Spontaneous
  Country: US (occurrence: US)
  Receive Date: 20150803
  Receipt Date: 20150803
  Transmission Date: 20151125
  Serious: No
  Sender: FDA-Public Use
  Company Number: US-ELI_LILLY_AND_COMPANY-US200805001268

PATIENT
  Sex: Female

DRUGS (6)
  1. STRATTERA [Suspect]
     Active Substance: ATOMOXETINE HYDROCHLORIDE
     Indication: ATTENTION DEFICIT/HYPERACTIVITY DISORDER
     Dosage: 80 MG, UNK
     Dates: start: 2005, end: 200806
  2. LORAZEPAM. [Concomitant]
     Active Substance: LORAZEPAM
     Dosage: 1 MG, AS NEEDED
  3. WELLBUTRIN [Concomitant]
     Active Substance: BUPROPION HYDROCHLORIDE
     Dosage: 150 MG, EACH MORNING
     Dates: start: 2008, end: 2008
  4. LORAZEPAM. [Concomitant]
     Active Substance: LORAZEPAM
     Dosage: 1 MG, EACH EVENING
  5. WELLBUTRIN [Concomitant]
     Active Substance: BUPROPION HYDROCHLORIDE
     Dosage: 150 MG, 2/D
     Dates: start: 2008
  6. STRATTERA [Suspect]
     Active Substance: ATOMOXETINE HYDROCHLORIDE
     Dosage: 40 MG, DAILY (1/D)
     Dates: start: 200806, end: 200807

REACTIONS (8)
  - Chills [Unknown]
  - Eating disorder [Unknown]
  - Panic attack [Unknown]
  - Adjustment disorder [Unknown]
  - Obsessive-compulsive disorder [Unknown]
  - Raynaud^s phenomenon [Unknown]
  - Depression [Unknown]
  - Rapid eye movements sleep abnormal [Recovered/Resolved]

NARRATIVE: CASE EVENT DATE: 2008
